FAERS Safety Report 22255510 (Version 1)
Quarter: 2023Q2

REPORT INFORMATION
  Report Type: Spontaneous
  Country: US (occurrence: US)
  Receive Date: 20230426
  Receipt Date: 20230426
  Transmission Date: 20230722
  Serious: No
  Sender: FDA-Public Use
  Company Number: US-AMGEN-USASP2023070342

PATIENT

DRUGS (16)
  1. ARANESP [Suspect]
     Active Substance: DARBEPOETIN ALFA
     Indication: Product used for unknown indication
     Dosage: 25 MICROGRAM
     Route: 065
  2. ARANESP [Suspect]
     Active Substance: DARBEPOETIN ALFA
     Dosage: 25 MICROGRAM
     Route: 065
  3. ARANESP [Suspect]
     Active Substance: DARBEPOETIN ALFA
     Dosage: 40 MICROGRAM
     Route: 065
  4. ARANESP [Suspect]
     Active Substance: DARBEPOETIN ALFA
     Dosage: 60 MICROGRAM
     Route: 065
  5. ARANESP [Suspect]
     Active Substance: DARBEPOETIN ALFA
     Dosage: 100 MICROGRAM
     Route: 065
  6. ARANESP [Suspect]
     Active Substance: DARBEPOETIN ALFA
     Dosage: 200 MICROGRAM
     Route: 065
  7. ARANESP [Suspect]
     Active Substance: DARBEPOETIN ALFA
     Dosage: 300 MICROGRAM
     Route: 065
  8. ARANESP [Suspect]
     Active Substance: DARBEPOETIN ALFA
     Dosage: 300 MICROGRAM
     Route: 065
  9. ARANESP [Suspect]
     Active Substance: DARBEPOETIN ALFA
     Dosage: 500 MICROGRAM
     Route: 065
  10. PROLIA [Suspect]
     Active Substance: DENOSUMAB
     Indication: Product used for unknown indication
     Dosage: 60 MILLIGRAM
     Route: 065
  11. KANJINTI [Suspect]
     Active Substance: TRASTUZUMAB-ANNS
     Indication: Product used for unknown indication
     Dosage: 420 MILLIGRAM
     Route: 065
  12. NEULASTA [Suspect]
     Active Substance: PEGFILGRASTIM
     Indication: Product used for unknown indication
     Dosage: 6 MILLIGRAM, UNK
     Route: 065
  13. NPLATE [Suspect]
     Active Substance: ROMIPLOSTIM
     Indication: Product used for unknown indication
     Route: 065
  14. VECTIBIX [Suspect]
     Active Substance: PANITUMUMAB
     Indication: Product used for unknown indication
     Route: 065
  15. XGEVA [Suspect]
     Active Substance: DENOSUMAB
     Indication: Product used for unknown indication
     Dosage: 120 MILLIGRAM
     Route: 065
  16. MVASI [Suspect]
     Active Substance: BEVACIZUMAB-AWWB
     Indication: Product used for unknown indication
     Route: 065

REACTIONS (2)
  - Product storage error [Unknown]
  - Circumstance or information capable of leading to medication error [Unknown]
